FAERS Safety Report 14447113 (Version 9)
Quarter: 2019Q1

REPORT INFORMATION
  Report Type: Spontaneous
  Country: PL (occurrence: PL)
  Receive Date: 20180126
  Receipt Date: 20190201
  Transmission Date: 20190417
  Serious: Yes (Life-Threatening, Hospitalization, Other)
  Sender: FDA-Public Use
  Company Number: PL-ASTELLAS-2018US005206

PATIENT
  Age: 58 Year
  Sex: Female

DRUGS (28)
  1. MIDAZOLAM [Suspect]
     Active Substance: MIDAZOLAM HYDROCHLORIDE
     Indication: SEIZURE
  2. SIMULECT [Suspect]
     Active Substance: BASILIXIMAB
     Indication: IMMUNOSUPPRESSANT DRUG THERAPY
  3. CICLOSPORIN [Suspect]
     Active Substance: CYCLOSPORINE
     Indication: PRODUCT USED FOR UNKNOWN INDICATION
     Dosage: UNK, UNKNOWN FREQ.
     Route: 065
  4. MYCOPHENOLATE MOFETIL. [Suspect]
     Active Substance: MYCOPHENOLATE MOFETIL
     Indication: RENAL TRANSPLANT
     Dosage: UNK, UNKNOWN FREQ.
     Route: 065
  5. METHYLPREDNISOLONE. [Suspect]
     Active Substance: METHYLPREDNISOLONE
     Indication: PRODUCT USED FOR UNKNOWN INDICATION
     Route: 042
  6. CLOPIDOGREL [Suspect]
     Active Substance: CLOPIDOGREL BISULFATE
     Indication: PRODUCT USED FOR UNKNOWN INDICATION
     Dosage: UNK, UNKNOWN FREQ.
     Route: 065
  7. MYCOPHENOLIC ACID. [Suspect]
     Active Substance: MYCOPHENOLIC ACID
     Indication: RENAL TRANSPLANT
     Dosage: UNK, UNKNOWN FREQ.
     Route: 065
  8. NORADRENALINE                      /00127501/ [Concomitant]
     Active Substance: NOREPINEPHRINE
     Indication: CARDIAC DISORDER
     Dosage: UNK UNK, UNKNOWN FREQ.
     Route: 065
  9. SULFAMETHOXAZOLE W/TRIMETHOPRIM [Suspect]
     Active Substance: SULFAMETHOXAZOLE\TRIMETHOPRIM
     Indication: C-REACTIVE PROTEIN INCREASED
     Dosage: UNK UNK, UNKNOWN FREQ.
     Route: 065
  10. SIMULECT [Suspect]
     Active Substance: BASILIXIMAB
     Indication: RENAL TRANSPLANT
     Dosage: UNK, UNKNOWN FREQ.
     Route: 065
  11. SIMULECT [Suspect]
     Active Substance: BASILIXIMAB
     Indication: IMMUNE TOLERANCE INDUCTION
  12. ASPIRIN. [Suspect]
     Active Substance: ASPIRIN
     Indication: RENAL TRANSPLANT
     Dosage: UNK UNK, UNKNOWN FREQ.
     Route: 065
  13. LINEZOLID. [Suspect]
     Active Substance: LINEZOLID
     Indication: PRODUCT USED FOR UNKNOWN INDICATION
     Dosage: UNK, UNKNOWN FREQ.
     Route: 065
  14. TICAGRELOR. [Suspect]
     Active Substance: TICAGRELOR
     Indication: ANTIPLATELET THERAPY
     Dosage: UNK, UNKNOWN FREQ.
     Route: 065
  15. TACROLIMUS MONOHYDRATE [Suspect]
     Active Substance: TACROLIMUS
     Indication: RENAL TRANSPLANT
     Dosage: UNK, UNKNOWN FREQ.
     Route: 065
  16. FLUCONAZOLE. [Suspect]
     Active Substance: FLUCONAZOLE
     Indication: PRODUCT USED FOR UNKNOWN INDICATION
     Dosage: UNK, UNKNOWN FREQ.
     Route: 042
  17. PIPERACILLIN AND TAZOBACTAM [Suspect]
     Active Substance: PIPERACILLIN SODIUM\TAZOBACTAM SODIUM
     Indication: PRODUCT USED FOR UNKNOWN INDICATION
     Dosage: UNK, UNKNOWN FREQ.
     Route: 065
  18. CICLOSPORIN [Suspect]
     Active Substance: CYCLOSPORINE
     Dosage: UNK, UNKNOWN FREQ.
     Route: 065
     Dates: start: 20160101
  19. NORADRENALINE                      /00127501/ [Concomitant]
     Active Substance: NOREPINEPHRINE
     Indication: PRODUCT USED FOR UNKNOWN INDICATION
  20. MIDAZOLAM [Suspect]
     Active Substance: MIDAZOLAM HYDROCHLORIDE
     Indication: SEDATION
     Dosage: UNK UNK, UNKNOWN FREQ.
     Route: 065
  21. SULFAMETHOXAZOLE W/TRIMETHOPRIM [Suspect]
     Active Substance: SULFAMETHOXAZOLE\TRIMETHOPRIM
     Dosage: UNK UNK, UNKNOWN FREQ.
     Route: 065
     Dates: start: 20161201
  22. MYCOPHENOLATE MOFETIL. [Suspect]
     Active Substance: MYCOPHENOLATE MOFETIL
     Indication: IMMUNOSUPPRESSANT DRUG THERAPY
     Dosage: UNK, UNKNOWN FREQ.
     Route: 065
     Dates: start: 20160601
  23. FLUCONAZOLE. [Suspect]
     Active Substance: FLUCONAZOLE
     Route: 065
  24. MEROPENEM. [Suspect]
     Active Substance: MEROPENEM
     Indication: PRODUCT USED FOR UNKNOWN INDICATION
     Dosage: UNK, UNKNOWN FREQ.
     Route: 065
  25. TACROLIMUS. [Suspect]
     Active Substance: TACROLIMUS
     Indication: RENAL TRANSPLANT
     Dosage: UNK UNK, UNKNOWN FREQ.
     Route: 065
  26. TACROLIMUS. [Suspect]
     Active Substance: TACROLIMUS
     Indication: IMMUNOSUPPRESSANT DRUG THERAPY
     Dosage: UNK UNK, UNKNOWN FREQ.
     Route: 065
     Dates: start: 20160601
  27. CIPROFLOXACIN. [Suspect]
     Active Substance: CIPROFLOXACIN
     Indication: PRODUCT USED FOR UNKNOWN INDICATION
     Dosage: UNK UNK, UNKNOWN FREQ.
     Route: 065
  28. TICAGRELOR. [Suspect]
     Active Substance: TICAGRELOR
     Indication: PRODUCT USED FOR UNKNOWN INDICATION

REACTIONS (38)
  - Dyspnoea [Unknown]
  - Complications of transplanted kidney [Recovering/Resolving]
  - Coronary artery stenosis [Unknown]
  - Electrolyte imbalance [Recovered/Resolved]
  - Arteriosclerosis [Unknown]
  - Acute coronary syndrome [Unknown]
  - Myocardial ischaemia [Unknown]
  - Electrocardiogram ST segment depression [Unknown]
  - Transplant rejection [Unknown]
  - Loss of consciousness [Unknown]
  - Brain natriuretic peptide increased [Unknown]
  - Inflammation [Recovering/Resolving]
  - Hypotonia [Unknown]
  - Cardiogenic shock [Recovered/Resolved]
  - Cardiac failure [Unknown]
  - Escherichia urinary tract infection [Unknown]
  - Peripheral swelling [Unknown]
  - Hypotension [Recovering/Resolving]
  - Blood creatinine increased [Unknown]
  - Pulmonary congestion [Unknown]
  - Upper respiratory tract infection [Unknown]
  - Immunosuppressant drug level increased [Unknown]
  - Extremity necrosis [Unknown]
  - Asthenia [Unknown]
  - Cardiac arrest [Not Recovered/Not Resolved]
  - Pneumonitis [Not Recovered/Not Resolved]
  - Thrombocytosis [Unknown]
  - Haematoma [Not Recovered/Not Resolved]
  - Diabetic macroangiopathy [Unknown]
  - Acid base balance abnormal [Recovering/Resolving]
  - Delayed graft function [Unknown]
  - Anaemia [Unknown]
  - Cardiotoxicity [Unknown]
  - Anuria [Not Recovered/Not Resolved]
  - Intermittent claudication [Unknown]
  - Renal impairment [Unknown]
  - Myocardial infarction [Recovered/Resolved]
  - Arrhythmia [Unknown]

NARRATIVE: CASE EVENT DATE: 2016
